FAERS Safety Report 25485061 (Version 3)
Quarter: 2025Q4

REPORT INFORMATION
  Report Type: Report from Study
  Country: EU (occurrence: EU)
  Receive Date: 20250626
  Receipt Date: 20251205
  Transmission Date: 20260118
  Serious: Yes (Other)
  Sender: DAIICHI
  Company Number: EU-ASTRAZENECA-202506GLO014357DE

PATIENT
  Sex: Female
  Weight: 69 kg

DRUGS (7)
  1. ENHERTU [Suspect]
     Active Substance: FAM-TRASTUZUMAB DERUXTECAN-NXKI
     Indication: HER2 positive breast cancer
     Dosage: 5.4 MILLIGRAM/KILOGRAM
     Route: 042
     Dates: start: 20250508, end: 20250710
  2. PREGABALIN [Concomitant]
     Active Substance: PREGABALIN
     Indication: Neuralgia
     Dosage: 150 MILLIGRAM, BID
     Route: 048
     Dates: start: 20211019, end: 20251119
  3. GRANISETRON HYDROCHLORIDE [Concomitant]
     Active Substance: GRANISETRON HYDROCHLORIDE
     Indication: Nausea
     Dosage: 2 MILLIGRAM, CYCLIC ADMINISTRATION
     Route: 048
     Dates: start: 20250509, end: 20250730
  4. GRANISETRON HYDROCHLORIDE [Concomitant]
     Active Substance: GRANISETRON HYDROCHLORIDE
     Dosage: 2 MILLIGRAM, CYCLIC ADMINISTRATION
     Route: 042
     Dates: start: 20250508, end: 20250730
  5. DULOXETINE [Concomitant]
     Active Substance: DULOXETINE
     Indication: Product used for unknown indication
     Dosage: 60 MG, QD
     Route: 048
     Dates: start: 20211019, end: 20251119
  6. BUPRENORPHINE HYDROCHLORIDE [Concomitant]
     Active Substance: BUPRENORPHINE HYDROCHLORIDE
     Indication: Product used for unknown indication
     Dosage: 20 MICROGRAM, CYCLIC ADMINISTRATION
     Route: 062
     Dates: start: 20211019, end: 20251119
  7. DEXAMETHASONE SODIUM PHOSPHATE [Concomitant]
     Active Substance: DEXAMETHASONE SODIUM PHOSPHATE
     Indication: Product used for unknown indication
     Dosage: 8 MILLIGRAM, CYCLIC ADMINISTRATION
     Route: 048
     Dates: start: 20250508, end: 20250730

REACTIONS (2)
  - Eosinophilia [Recovering/Resolving]
  - Neutropenia [Recovered/Resolved]

NARRATIVE: CASE EVENT DATE: 20250612
